FAERS Safety Report 6128864-4 (Version None)
Quarter: 2009Q1

REPORT INFORMATION
  Report Type: 
  Country: None (occurrence: None)
  Receive Date: 20090320
  Receipt Date: 20090316
  Transmission Date: 20090719
  Serious: Yes (Death, Life-Threatening, Hospitalization)
  Sender: FDA-Public Use
  Company Number: 2009S1000047

PATIENT
  Age: 73 Year
  Sex: Male
  Weight: 102 kg

DRUGS (3)
  1. CUBICIN [Suspect]
     Indication: STAPHYLOCOCCAL BACTERAEMIA
     Dosage: 6 MG/KG;Q24H;IV
     Route: 042
     Dates: start: 20081213, end: 20081229
  2. CUBICIN [Suspect]
     Indication: STAPHYLOCOCCAL OSTEOMYELITIS
     Dosage: 6 MG/KG;Q24H;IV
     Route: 042
     Dates: start: 20081213, end: 20081229
  3. VANCOMYCIN HCL [Concomitant]

REACTIONS (8)
  - BACTERAEMIA [None]
  - CARDIAC ARREST [None]
  - CARDIOVASCULAR DISORDER [None]
  - DRUG INEFFECTIVE [None]
  - DRUG RESISTANCE [None]
  - ENDOCARDITIS STAPHYLOCOCCAL [None]
  - RESPIRATORY FAILURE [None]
  - SEPSIS [None]
